FAERS Safety Report 21228179 (Version 1)
Quarter: 2022Q3

REPORT INFORMATION
  Report Type: Spontaneous
  Country: IN (occurrence: IN)
  Receive Date: 20220818
  Receipt Date: 20220818
  Transmission Date: 20221027
  Serious: Yes (Other)
  Sender: FDA-Public Use
  Company Number: IN-SUN PHARMACEUTICAL INDUSTRIES LTD-2020R1-242019

PATIENT
  Age: 16 Year
  Sex: Male

DRUGS (1)
  1. NALTREXONE [Suspect]
     Active Substance: NALTREXONE
     Indication: Drug dependence
     Dosage: 25 MILLIGRAM
     Route: 048

REACTIONS (2)
  - Depression [Recovering/Resolving]
  - Psychotic symptom [Recovering/Resolving]
